FAERS Safety Report 6035764-7 (Version None)
Quarter: 2009Q1

REPORT INFORMATION
  Report Type: 
  Country: None (occurrence: None)
  Receive Date: 20090113
  Receipt Date: 20090108
  Transmission Date: 20090719
  Serious: Yes (Other)
  Sender: FDA-Public Use
  Company Number: US-BAXTER-2009BH000293

PATIENT
  Age: 27 Year
  Sex: Male

DRUGS (1)
  1. METRONIDAZOLE [Suspect]
     Indication: CLOSTRIDIUM DIFFICILE COLITIS
     Route: 065

REACTIONS (4)
  - ATAXIA [None]
  - BRAIN OEDEMA [None]
  - CONFUSIONAL STATE [None]
  - DYSARTHRIA [None]
